FAERS Safety Report 6341798-5 (Version None)
Quarter: 2009Q3

REPORT INFORMATION
  Report Type: 
  Country: None (occurrence: None)
  Receive Date: 20090904
  Receipt Date: 20090828
  Transmission Date: 20100115
  Serious: Yes (Hospitalization)
  Sender: FDA-Public Use
  Company Number: US-ABBOTT-09P-163-0590013-00

PATIENT
  Sex: Female
  Weight: 63.106 kg

DRUGS (2)
  1. SYNTHROID [Suspect]
     Indication: HYPOTHYROIDISM
     Route: 048
     Dates: start: 19830101
  2. SYNTHROID [Suspect]
     Route: 048

REACTIONS (7)
  - DIARRHOEA [None]
  - GASTRIC DISORDER [None]
  - HYPOPHAGIA [None]
  - INCORRECT DOSE ADMINISTERED [None]
  - PANCREATITIS [None]
  - RASH [None]
  - VOMITING [None]
